FAERS Safety Report 6368561-3 (Version None)
Quarter: 2009Q3

REPORT INFORMATION
  Report Type: 
  Country: None (occurrence: None)
  Receive Date: 20090922
  Receipt Date: 20081016
  Transmission Date: 20100115
  Serious: No
  Sender: FDA-Public Use
  Company Number: US-BRISTOL-MYERS SQUIBB COMPANY-14372254

PATIENT
  Age: 36 Year
  Sex: Female

DRUGS (5)
  1. BUSPAR [Suspect]
     Indication: POSTPARTUM DEPRESSION
     Dosage: DOSE REDUCED TO 10MG FROM OCT2008
     Route: 048
     Dates: start: 20080901
  2. BUSPAR [Interacting]
     Indication: ANXIETY
     Dosage: DOSE REDUCED TO 10MG FROM OCT2008
     Route: 048
     Dates: start: 20080901
  3. LEXAPRO [Interacting]
     Indication: POSTPARTUM DEPRESSION
     Route: 048
     Dates: start: 20080901
  4. LEXAPRO [Interacting]
     Indication: ANXIETY
     Route: 048
     Dates: start: 20080901
  5. KLONOPIN [Concomitant]
     Indication: INSOMNIA

REACTIONS (3)
  - AGITATION [None]
  - DRUG INTERACTION [None]
  - IRRITABILITY [None]
